FAERS Safety Report 7832273-7 (Version None)
Quarter: 2011Q4

REPORT INFORMATION
  Report Type: 
  Country: None (occurrence: None)
  Receive Date: 20111022
  Receipt Date: 20100708
  Transmission Date: 20120403
  Serious: No
  Sender: FDA-Public Use
  Company Number: US-BAYER-201027817NA

PATIENT
  Sex: Female

DRUGS (1)
  1. CIPROFLOXACIN [Suspect]
     Dosage: 250 MG, BID
     Route: 048
     Dates: start: 20100707, end: 20100708

REACTIONS (1)
  - ABDOMINAL DISCOMFORT [None]
